FAERS Safety Report 15404914 (Version 1)
Quarter: 2018Q3

REPORT INFORMATION
  Report Type: Spontaneous
  Country: US (occurrence: US)
  Receive Date: 20180920
  Receipt Date: 20180920
  Transmission Date: 20181010
  Serious: No
  Sender: FDA-Public Use
  Company Number: US-BAUSCH-BL-2018-000280

PATIENT
  Age: 84 Year
  Sex: Male
  Weight: 74.46 kg

DRUGS (2)
  1. ERYTHROMYCIN. [Suspect]
     Active Substance: ERYTHROMYCIN
     Indication: CHALAZION
     Dosage: 1 APPLICATION IN RIGHT EYE
     Route: 047
     Dates: start: 20171230, end: 20180101
  2. ERYTHROMYCIN. [Suspect]
     Active Substance: ERYTHROMYCIN
     Route: 047
     Dates: start: 201801, end: 201801

REACTIONS (6)
  - Erythema [Recovered/Resolved]
  - Lip erythema [Recovered/Resolved]
  - Off label use [Recovered/Resolved]
  - Eye contusion [Recovered/Resolved]
  - Erythema of eyelid [Recovered/Resolved]
  - Lip dry [Recovered/Resolved]

NARRATIVE: CASE EVENT DATE: 20171230
